FAERS Safety Report 13121699 (Version 1)
Quarter: 2017Q1

REPORT INFORMATION
  Report Type: Spontaneous
  Country: US (occurrence: US)
  Receive Date: 20170115
  Receipt Date: 20170115
  Transmission Date: 20170428
  Serious: Yes (Other)
  Sender: FDA-Public Use
  Company Number: None

PATIENT
  Age: 63 Year
  Sex: Female
  Weight: 60.75 kg

DRUGS (4)
  1. BONIVA [Concomitant]
     Active Substance: IBANDRONATE SODIUM
  2. CIPROFLOXACIN. [Suspect]
     Active Substance: CIPROFLOXACIN
     Indication: KIDNEY INFECTION
     Dosage: ?          QUANTITY:6 TABLET(S);?
     Route: 048
     Dates: start: 20170104, end: 20170107
  3. CIPROFLOXACIN. [Suspect]
     Active Substance: CIPROFLOXACIN
     Indication: CYSTITIS
     Dosage: ?          QUANTITY:6 TABLET(S);?
     Route: 048
     Dates: start: 20170104, end: 20170107
  4. ALLERGY MEDS [Concomitant]

REACTIONS (6)
  - Tremor [None]
  - Vomiting [None]
  - Body temperature decreased [None]
  - Seizure [None]
  - Migraine [None]
  - Asthenia [None]

NARRATIVE: CASE EVENT DATE: 20170108
